FAERS Safety Report 8124048-9 (Version None)
Quarter: 2012Q1

REPORT INFORMATION
  Report Type: 
  Country: None (occurrence: None)
  Receive Date: 20120209
  Receipt Date: 20120206
  Transmission Date: 20120608
  Serious: No
  Sender: FDA-Public Use
  Company Number: US-PFIZER INC-2012032638

PATIENT
  Sex: Male
  Weight: 86.168 kg

DRUGS (3)
  1. ALAVERT [Suspect]
     Indication: RHINORRHOEA
  2. ALAVERT [Suspect]
     Indication: LACRIMATION INCREASED
  3. ALAVERT [Suspect]
     Indication: SINUS CONGESTION
     Dosage: 1 TABLET
     Dates: start: 20120202, end: 20120202

REACTIONS (1)
  - NAUSEA [None]
